FAERS Safety Report 7343036-3 (Version None)
Quarter: 2011Q1

REPORT INFORMATION
  Report Type: 
  Country: None (occurrence: None)
  Receive Date: 20110310
  Receipt Date: 20110228
  Transmission Date: 20110831
  Serious: Yes (Other)
  Sender: FDA-Public Use
  Company Number: GB-JNJFOC-20110303126

PATIENT
  Age: 72 Year
  Sex: Male

DRUGS (6)
  1. BISOPROLOL FUMARATE [Concomitant]
     Indication: CARDIAC DISORDER
     Route: 065
  2. TRAMADOL HCL [Suspect]
     Indication: PAIN
     Route: 048
  3. TARCEVA [Suspect]
     Indication: NON-SMALL CELL LUNG CANCER
     Route: 048
  4. ALLOPURINOL [Concomitant]
     Indication: GOUT
     Route: 065
  5. IBUPROFEN [Concomitant]
     Indication: PAIN
     Route: 065
  6. PARACETAMOL [Concomitant]
     Indication: PAIN
     Route: 065

REACTIONS (3)
  - METASTASES TO CENTRAL NERVOUS SYSTEM [None]
  - MYOCLONUS [None]
  - SKIN REACTION [None]
